FAERS Safety Report 18586395 (Version 1)
Quarter: 2020Q4

REPORT INFORMATION
  Report Type: Spontaneous
  Country: AU (occurrence: AU)
  Receive Date: 20201207
  Receipt Date: 20201207
  Transmission Date: 20210114
  Serious: Yes (Other)
  Sender: FDA-Public Use
  Company Number: AU-TEVA-2020-AU-1855257

PATIENT
  Sex: Male

DRUGS (5)
  1. POSACONAZOLE 300 MG [Concomitant]
     Route: 065
  2. MYCOPHENOLATE MOFETIL. [Suspect]
     Active Substance: MYCOPHENOLATE MOFETIL
     Indication: CHRONIC GRAFT VERSUS HOST DISEASE
     Route: 065
  3. IMATINIB MESYLATE. [Suspect]
     Active Substance: IMATINIB MESYLATE
     Indication: CHRONIC GRAFT VERSUS HOST DISEASE
     Route: 065
  4. PREDNISONE. [Suspect]
     Active Substance: PREDNISONE
     Indication: CHRONIC GRAFT VERSUS HOST DISEASE
     Route: 065
  5. RITUXIMAB. [Suspect]
     Active Substance: RITUXIMAB
     Indication: CHRONIC GRAFT VERSUS HOST DISEASE
     Dosage: 2 CYCLES OF WEEKLY RITUXIMAB (X4 DOSES)
     Route: 065

REACTIONS (2)
  - Chronic graft versus host disease [Unknown]
  - Drug ineffective [Unknown]
